FAERS Safety Report 18302273 (Version 1)
Quarter: 2020Q3

REPORT INFORMATION
  Report Type: Spontaneous
  Country: GB (occurrence: GB)
  Receive Date: 20200923
  Receipt Date: 20200923
  Transmission Date: 20201103
  Serious: Yes (Hospitalization, Other)
  Sender: FDA-Public Use
  Company Number: GB-ACCORD-202367

PATIENT
  Age: 34 Year
  Sex: Female

DRUGS (1)
  1. SERTRALINE [Suspect]
     Active Substance: SERTRALINE HYDROCHLORIDE
     Indication: DEPRESSION
     Route: 048
     Dates: start: 20200813, end: 20200815

REACTIONS (2)
  - Aphasia [Recovered/Resolved]
  - Serotonin syndrome [Unknown]

NARRATIVE: CASE EVENT DATE: 20200815
